FAERS Safety Report 19401279 (Version 1)
Quarter: 2021Q2

REPORT INFORMATION
  Report Type: Spontaneous
  Country: LU (occurrence: LU)
  Receive Date: 20210611
  Receipt Date: 20210611
  Transmission Date: 20210717
  Serious: Yes (Death)
  Sender: FDA-Public Use
  Company Number: LU-JNJFOC-20210611165

PATIENT
  Age: 92 Year
  Sex: Female
  Weight: 58.4 kg

DRUGS (11)
  1. ELIQUIS [Concomitant]
     Active Substance: APIXABAN
  2. COMIRNATY [Suspect]
     Active Substance: TOZINAMERAN
     Indication: COVID-19 IMMUNISATION
     Dosage: D1; IN TOTAL
     Route: 030
     Dates: start: 20210202, end: 20210202
  3. STILNOX [Concomitant]
     Active Substance: ZOLPIDEM TARTRATE
  4. FUROSEMIDE. [Concomitant]
     Active Substance: FUROSEMIDE
  5. COMIRNATY [Suspect]
     Active Substance: TOZINAMERAN
     Dosage: D2; IN TOTAL
     Route: 030
     Dates: start: 20210302, end: 20210302
  6. COVERSYL [Concomitant]
     Active Substance: PERINDOPRIL
  7. BISOPROLOL [Concomitant]
     Active Substance: BISOPROLOL
  8. DUROGESIC [Suspect]
     Active Substance: FENTANYL
     Indication: PAIN
     Route: 065
     Dates: start: 20210416
  9. ALLOPURINOL. [Concomitant]
     Active Substance: ALLOPURINOL
     Dosage: 100 MG
  10. DIGOXINE [Concomitant]
     Active Substance: DIGOXIN
     Dosage: DIGOXINE 0.125
  11. ESOMEPRAZOLE. [Concomitant]
     Active Substance: ESOMEPRAZOLE MAGNESIUM
     Dosage: 20 MG

REACTIONS (9)
  - Atrial fibrillation [Fatal]
  - Herpes zoster [Fatal]
  - Cardiac failure chronic [Fatal]
  - Acute pulmonary oedema [Fatal]
  - Hypertension [Fatal]
  - General physical health deterioration [Fatal]
  - Pain [Fatal]
  - Bed rest [Fatal]
  - Weight decreased [Fatal]

NARRATIVE: CASE EVENT DATE: 202104
